FAERS Safety Report 11727472 (Version 3)
Quarter: 2015Q4

REPORT INFORMATION
  Report Type: Report from Study
  Country: US (occurrence: None)
  Receive Date: 20151112
  Receipt Date: 20151230
  Transmission Date: 20160304
  Serious: Yes (Other)
  Sender: FDA-Public Use
  Company Number: US-MDT-ADR-2015-02135

PATIENT
  Age: 43 Year
  Sex: Female

DRUGS (2)
  1. BACLOFEN INTRATHECAL (600 MCG/ML) [Suspect]
     Active Substance: BACLOFEN
     Dosage: 189.75 MCG/DAY
  2. MORPHINE SULFATE INTRATHECAL (MS04) (15 MG/ML) [Suspect]
     Active Substance: MORPHINE SULFATE
     Dosage: 4.744 MG/DAY

REACTIONS (7)
  - Arthralgia [None]
  - Nuclear magnetic resonance imaging abnormal [None]
  - Dysstasia [None]
  - Muscle spasms [None]
  - Spinal cord injury thoracic [None]
  - Gait disturbance [None]
  - Back pain [None]
